FAERS Safety Report 20658487 (Version 2)
Quarter: 2022Q2

REPORT INFORMATION
  Report Type: Spontaneous
  Country: BH (occurrence: BH)
  Receive Date: 20220331
  Receipt Date: 20220521
  Transmission Date: 20220721
  Serious: Yes (Hospitalization, Other)
  Sender: FDA-Public Use
  Company Number: BH-NOVARTISPH-NVSC2022BH069492

PATIENT
  Sex: Female

DRUGS (2)
  1. ADAKVEO [Suspect]
     Active Substance: CRIZANLIZUMAB-TMCA
     Indication: Sickle cell anaemia with crisis
     Dosage: 4 VIALS (EACH VIAL CONTAINS 100MG/10ML) (WEEK 0 , 2 AND THEN EVERY 4 WEEKS THEREAFTER)
     Route: 042
     Dates: start: 202201, end: 202201
  2. ADAKVEO [Suspect]
     Active Substance: CRIZANLIZUMAB-TMCA
     Dosage: UNK, Q4W
     Route: 042

REACTIONS (3)
  - Sickle cell anaemia with crisis [Unknown]
  - Haemolytic anaemia [Unknown]
  - Pyrexia [Unknown]
